FAERS Safety Report 5572988-7 (Version None)
Quarter: 2007Q4

REPORT INFORMATION
  Report Type: 
  Country: None (occurrence: None)
  Receive Date: 20071224
  Receipt Date: 20071220
  Transmission Date: 20080405
  Serious: Yes (Hospitalization, Other)
  Sender: FDA-Public Use
  Company Number: FR-BRISTOL-MYERS SQUIBB COMPANY-14022248

PATIENT
  Age: 75 Year
  Sex: Male

DRUGS (4)
  1. COUMADIN [Suspect]
     Indication: ATRIAL FIBRILLATION
     Dates: end: 20071130
  2. LEVOTHYROX [Concomitant]
     Dosage: 1 DOSAGE FORM = 50(DOSE UNIT IS NOT GIVEN)
  3. ALDACTONE [Concomitant]
     Dosage: 1 DOSAGE FORM = 25(DOSE UNIT IS NOT GIVEN)
  4. CARDENSIEL [Concomitant]
     Dosage: 1 DOSAGE FORM = 1.25(DOSE UNIT IS NOT GIVEN)

REACTIONS (3)
  - ANAEMIA [None]
  - FALL [None]
  - SUBDURAL HAEMATOMA [None]
